FAERS Safety Report 10444558 (Version 1)
Quarter: 2014Q3

REPORT INFORMATION
  Report Type: Spontaneous
  Country: US (occurrence: US)
  Receive Date: 20140910
  Receipt Date: 20140910
  Transmission Date: 20150326
  Serious: Yes (Other)
  Sender: FDA-Public Use
  Company Number: US-SA-2014SA122195

PATIENT
  Sex: Female

DRUGS (1)
  1. ALLEGRA-D [Suspect]
     Active Substance: FEXOFENADINE\PSEUDOEPHEDRINE
     Dosage: ALLEGRA D 12 HOUR AT 8PM ONE EVENING AND 11AM THE NEXT MORNING
     Route: 048

REACTIONS (2)
  - Macular degeneration [Unknown]
  - Drug ineffective [Unknown]
